FAERS Safety Report 7357721-0 (Version None)
Quarter: 2011Q1

REPORT INFORMATION
  Report Type: 
  Country: None (occurrence: None)
  Receive Date: 20110317
  Receipt Date: 20110310
  Transmission Date: 20110831
  Serious: Yes (Hospitalization, Other)
  Sender: FDA-Public Use
  Company Number: US-ELI_LILLY_AND_COMPANY-US201102006692

PATIENT
  Sex: Female

DRUGS (4)
  1. CRESTOR [Concomitant]
     Dosage: UNK, UNKNOWN
     Route: 065
  2. ZYRTEC [Concomitant]
     Dosage: UNK, UNKNOWN
     Route: 065
  3. FORTEO [Suspect]
     Indication: OSTEOPOROSIS
     Dosage: 20 UG, DAILY (1/D)
     Dates: start: 20101001, end: 20101201
  4. NEXIUM [Concomitant]
     Dosage: UNK, UNKNOWN
     Route: 065

REACTIONS (4)
  - FIBULA FRACTURE [None]
  - FALL [None]
  - TIBIA FRACTURE [None]
  - FOOT FRACTURE [None]
